FAERS Safety Report 8793153 (Version 1)
Quarter: 2012Q4

REPORT INFORMATION
  Report Type: Report from Study
  Country: HU (occurrence: HU)
  Receive Date: 20120918
  Receipt Date: 20120918
  Transmission Date: 20130627
  Serious: Yes (Other)
  Sender: FDA-Public Use
  Company Number: HU-ROCHE-1124263

PATIENT
  Sex: Female

DRUGS (3)
  1. XELODA [Suspect]
     Indication: BREAST CANCER
     Route: 048
     Dates: start: 20061010, end: 200708
  2. XELODA [Suspect]
     Indication: METASTASES TO BONE
  3. XELODA [Suspect]
     Indication: METASTASES TO LUNG

REACTIONS (2)
  - Neoplasm [Unknown]
  - Dyspnoea [Unknown]
